FAERS Safety Report 24648023 (Version 1)
Quarter: 2024Q4

REPORT INFORMATION
  Report Type: Spontaneous
  Country: SE (occurrence: SE)
  Receive Date: 20241121
  Receipt Date: 20241121
  Transmission Date: 20250115
  Serious: Yes (Other)
  Sender: SANOFI AVENTIS
  Company Number: SE-SA-2024SA339396

PATIENT
  Age: 54 Year
  Sex: Male

DRUGS (1)
  1. MULTAQ [Suspect]
     Active Substance: DRONEDARONE
     Indication: Product used for unknown indication
     Dosage: UNK
     Dates: end: 20240212

REACTIONS (10)
  - Atrial fibrillation [Unknown]
  - Hallucination [Unknown]
  - Erectile dysfunction [Unknown]
  - Swelling face [Unknown]
  - Flushing [Unknown]
  - Psoriasis [Unknown]
  - Diarrhoea [Unknown]
  - Eyelid rash [Unknown]
  - Dermatitis allergic [Unknown]
  - Pruritus [Unknown]

NARRATIVE: CASE EVENT DATE: 20240212
